FAERS Safety Report 7747616-2 (Version None)
Quarter: 2011Q3

REPORT INFORMATION
  Report Type: 
  Country: None (occurrence: None)
  Receive Date: 20110913
  Receipt Date: 20110908
  Transmission Date: 20111222
  Serious: Yes (Hospitalization, Other)
  Sender: FDA-Public Use
  Company Number: US-CEPHALON-2011004578

PATIENT
  Sex: Male
  Weight: 108 kg

DRUGS (4)
  1. CELEXA [Concomitant]
  2. TREANDA [Suspect]
     Indication: GLIOMA
     Route: 041
     Dates: start: 20110701
  3. LAMICTAL [Concomitant]
  4. DEXAMETHASONE [Concomitant]

REACTIONS (2)
  - LYMPHOPENIA [None]
  - PNEUMOCYSTIS JIROVECI PNEUMONIA [None]
